FAERS Safety Report 6986634-9 (Version None)
Quarter: 2010Q3

REPORT INFORMATION
  Report Type: 
  Country: None (occurrence: None)
  Receive Date: 20100915
  Receipt Date: 20100901
  Transmission Date: 20110219
  Serious: Yes (Hospitalization)
  Sender: FDA-Public Use
  Company Number: AU-MYLANLABS-2010S1016035

PATIENT
  Age: 30 Year
  Sex: Male

DRUGS (4)
  1. SERTRALINE HYDROCHLORIDE [Suspect]
     Indication: MAJOR DEPRESSION
     Dosage: TITRATED TO 200MG [FREQUENCY NOT STATED]
     Route: 065
  2. MIRTAZAPINE [Suspect]
     Indication: MAJOR DEPRESSION
     Dosage: 15 MG/DAY INCREASED TO 30 MG/DAY AFTER FOUR DOSES
     Route: 065
  3. MIRTAZAPINE [Suspect]
     Dosage: 30 MG/DAY
     Route: 065
  4. QUETIAPINE [Concomitant]
     Indication: SLEEP DISORDER
     Dosage: 50MG [FREQUENCY NOT STATED]
     Route: 065

REACTIONS (1)
  - SEROTONIN SYNDROME [None]
